FAERS Safety Report 8395939-9 (Version None)
Quarter: 2012Q2

REPORT INFORMATION
  Report Type: 
  Country: None (occurrence: None)
  Receive Date: 20120530
  Receipt Date: 20120525
  Transmission Date: 20120825
  Serious: Yes (Hospitalization, Other)
  Sender: FDA-Public Use
  Company Number: PHHY2012MX036547

PATIENT
  Sex: Female

DRUGS (8)
  1. LIPITOR [Concomitant]
     Indication: BLOOD CHOLESTEROL
     Dosage: 20 MG, QD
     Dates: start: 20120330
  2. ALDACTONE [Concomitant]
     Dosage: UNK UKN, UNK
  3. PRAZOLAM [Concomitant]
     Indication: GASTRIC DISORDER
     Dosage: 40 MG, QD
     Dates: start: 20120430
  4. NORVASC [Concomitant]
     Indication: HYPERTENSION
     Dosage: 5 MG, QD
     Dates: start: 20120425
  5. DIOVAN HCT [Suspect]
     Indication: HYPERTENSION
     Dosage: 1 DF (160/12.5 MG), QD
     Dates: start: 20120318, end: 20120416
  6. ROFUCAL [Concomitant]
     Indication: HYPERTENSION
     Dosage: 25 MG, QD
     Dates: start: 20120507
  7. LIPITOR [Concomitant]
     Indication: BLOOD TRIGLYCERIDES
  8. FERRANINA FOL [Concomitant]
     Dosage: UNK UKN, UNK

REACTIONS (8)
  - REFLUX GASTRITIS [None]
  - DEHYDRATION [None]
  - OXYGEN CONSUMPTION DECREASED [None]
  - GASTRIC INFECTION [None]
  - FALL [None]
  - DRUG HYPERSENSITIVITY [None]
  - RENAL FAILURE ACUTE [None]
  - UPPER LIMB FRACTURE [None]
